FAERS Safety Report 22178024 (Version 3)
Quarter: 2024Q1

REPORT INFORMATION
  Report Type: Report from Study
  Country: IN (occurrence: IN)
  Receive Date: 20230405
  Receipt Date: 20240319
  Transmission Date: 20240410
  Serious: Yes (Other)
  Sender: FDA-Public Use
  Company Number: IN-002147023-NVSC2020IN348999

PATIENT
  Age: 48 Year
  Sex: Female
  Weight: 54 kg

DRUGS (4)
  1. ELTROMBOPAG OLAMINE [Suspect]
     Active Substance: ELTROMBOPAG OLAMINE
     Indication: Immune thrombocytopenia
     Dosage: 50 MG, QD
     Route: 048
     Dates: start: 20190624, end: 20210120
  2. ELTROMBOPAG OLAMINE [Suspect]
     Active Substance: ELTROMBOPAG OLAMINE
     Dosage: 12.5 MG, QD (12.5 MG OF 25 MG STRIP ON MON,TUE,THU,FRI,SUN)
     Route: 048
     Dates: start: 20210121
  3. ELTROMBOPAG OLAMINE [Suspect]
     Active Substance: ELTROMBOPAG OLAMINE
     Dosage: 12.5 MG, QD (5 DAYS IN A WEEK)
     Route: 048
     Dates: start: 20230720
  4. ELTROMBOPAG OLAMINE [Suspect]
     Active Substance: ELTROMBOPAG OLAMINE
     Dosage: 12.5 MG, QD (MONDAY AND THURSDAY)
     Route: 048

REACTIONS (4)
  - Nephrolithiasis [Unknown]
  - Haemoglobin decreased [Unknown]
  - Wrong technique in product usage process [Recovering/Resolving]
  - Product use issue [Recovering/Resolving]

NARRATIVE: CASE EVENT DATE: 20210121
